FAERS Safety Report 6954978-2 (Version None)
Quarter: 2010Q3

REPORT INFORMATION
  Report Type: 
  Country: None (occurrence: None)
  Receive Date: 20100817
  Receipt Date: 20100111
  Transmission Date: 20110219
  Serious: No
  Sender: FDA-Public Use
  Company Number: 20096721

PATIENT
  Age: 15 Year
  Sex: Male

DRUGS (1)
  1. LIORESAL [Suspect]
     Indication: MUSCLE SPASTICITY
     Dosage: 305.2 MCG, DAILY, INTRATHECAL
     Route: 037

REACTIONS (4)
  - DRUG EFFECT DECREASED [None]
  - DRUG INEFFECTIVE [None]
  - HYPERTONIA [None]
  - MUSCLE SPASTICITY [None]
